FAERS Safety Report 11717679 (Version 4)
Quarter: 2016Q1

REPORT INFORMATION
  Report Type: Report from Study
  Country: US (occurrence: US)
  Receive Date: 20151110
  Receipt Date: 20160216
  Transmission Date: 20160525
  Serious: No
  Sender: FDA-Public Use
  Company Number: PHEH2015US023150

PATIENT
  Age: 22 Year
  Sex: Female
  Weight: 48.73 kg

DRUGS (1)
  1. GILENYA [Suspect]
     Active Substance: FINGOLIMOD HYDROCHLORIDE
     Indication: MULTIPLE SCLEROSIS
     Dosage: 0.5 MG, QD
     Route: 048
     Dates: start: 20151028, end: 20151215

REACTIONS (6)
  - Balance disorder [Unknown]
  - Headache [Recovered/Resolved]
  - Speech disorder [Unknown]
  - Pain [Unknown]
  - Dizziness [Unknown]
  - Multiple sclerosis [Unknown]

NARRATIVE: CASE EVENT DATE: 20151029
